FAERS Safety Report 19201468 (Version 2)
Quarter: 2021Q2

REPORT INFORMATION
  Report Type: Spontaneous
  Country: DE (occurrence: DE)
  Receive Date: 20210430
  Receipt Date: 20210619
  Transmission Date: 20210717
  Serious: Yes (Hospitalization)
  Sender: FDA-Public Use
  Company Number: NVSC2021DE091592

PATIENT
  Sex: Female
  Weight: 56 kg

DRUGS (5)
  1. NOVAMINSULFON [Concomitant]
     Active Substance: METAMIZOLE
     Indication: PAIN
     Dosage: UNK (2?4X PER DAY)
     Route: 065
     Dates: start: 2019
  2. PIQRAY [Suspect]
     Active Substance: ALPELISIB
     Indication: PRODUCT USED FOR UNKNOWN INDICATION
     Dosage: 150 MG, BID
     Route: 065
     Dates: start: 20210107, end: 20210218
  3. XGEVA [Concomitant]
     Active Substance: DENOSUMAB
     Indication: METASTASES TO BONE
     Dosage: UNK UNK, QMO (SYRINGE)
     Route: 065
     Dates: start: 20160801
  4. PIQRAY [Suspect]
     Active Substance: ALPELISIB
     Dosage: 200 MG, QD
     Route: 065
     Dates: start: 20210308
  5. L?THYROXIN [Concomitant]
     Active Substance: LEVOTHYROXINE SODIUM
     Indication: HYPOTHYROIDISM
     Dosage: UNK, QD
     Route: 065
     Dates: start: 2013

REACTIONS (9)
  - Rash pruritic [Recovering/Resolving]
  - Melaena [Recovered/Resolved]
  - Decreased appetite [Recovering/Resolving]
  - Rhinorrhoea [Not Recovered/Not Resolved]
  - Diarrhoea [Recovered/Resolved]
  - Vomiting [Recovering/Resolving]
  - Mucosal dryness [Not Recovered/Not Resolved]
  - Wound [Recovering/Resolving]
  - Weight decreased [Recovered/Resolved]

NARRATIVE: CASE EVENT DATE: 20210108
